FAERS Safety Report 11608990 (Version 2)
Quarter: 2015Q4

REPORT INFORMATION
  Report Type: Spontaneous
  Country: CH (occurrence: CH)
  Receive Date: 20151007
  Receipt Date: 20151026
  Transmission Date: 20160304
  Serious: Yes (Death)
  Sender: FDA-Public Use
  Company Number: CH-BAXTER-2015BAX054620

PATIENT
  Age: 80 Year
  Sex: Male

DRUGS (4)
  1. DUROGESIC [Concomitant]
     Active Substance: FENTANYL
     Indication: DYSPNOEA
  2. MORPHIUM [Concomitant]
     Indication: PRODUCT USED FOR UNKNOWN INDICATION
     Route: 065
  3. DUROGESIC [Concomitant]
     Active Substance: FENTANYL
     Indication: PALLIATIVE CARE
     Route: 065
     Dates: start: 20150928, end: 20151005
  4. EXTRANEAL [Suspect]
     Active Substance: CALCIUM CHLORIDE\ICODEXTRIN\MAGNESIUM CHLORIDE\SODIUM CHLORIDE\SODIUM LACTATE
     Indication: PERITONEAL DIALYSIS
     Route: 033
     Dates: start: 20150824, end: 20150928

REACTIONS (1)
  - Therapy cessation [Fatal]

NARRATIVE: CASE EVENT DATE: 20150928
